FAERS Safety Report 20228136 (Version 1)
Quarter: 2021Q4

REPORT INFORMATION
  Report Type: Spontaneous
  Country: US (occurrence: US)
  Receive Date: 20211224
  Receipt Date: 20211224
  Transmission Date: 20220303
  Serious: No
  Sender: FDA-Public Use
  Company Number: US-Vifor (International) Inc.-VIT-2021-09584

PATIENT
  Age: 85 Year
  Sex: Male

DRUGS (5)
  1. VELTASSA [Suspect]
     Active Substance: PATIROMER
     Indication: Renal disorder
     Route: 048
     Dates: start: 2021
  2. VELTASSA [Suspect]
     Active Substance: PATIROMER
     Route: 048
     Dates: start: 2021
  3. LISINOPRIL [Concomitant]
     Active Substance: LISINOPRIL
     Indication: Hypertension
  4. VITAMIN D3 [Concomitant]
     Active Substance: CHOLECALCIFEROL
  5. VITAMIN B12 [Concomitant]
     Active Substance: CYANOCOBALAMIN

REACTIONS (5)
  - Blood potassium increased [Not Recovered/Not Resolved]
  - Dizziness [Not Recovered/Not Resolved]
  - Malaise [Not Recovered/Not Resolved]
  - Wrong technique in product usage process [Unknown]
  - Product physical issue [Unknown]

NARRATIVE: CASE EVENT DATE: 20210101
